FAERS Safety Report 10049540 (Version 2)
Quarter: 2014Q2

REPORT INFORMATION
  Report Type: Report from Study
  Country: US (occurrence: US)
  Receive Date: 20140401
  Receipt Date: 20140401
  Transmission Date: 20141212
  Serious: Yes (Other)
  Sender: FDA-Public Use
  Company Number: US-SA-POMP-1000441

PATIENT
  Age: 60 Year
  Sex: Male
  Weight: 120 kg

DRUGS (16)
  1. ALGLUCOSIDASE ALFA [Suspect]
     Indication: GLYCOGEN STORAGE DISEASE TYPE II
     Dosage: 20 MG/KG, Q2W
     Route: 042
     Dates: start: 20060926
  2. LORATADINE [Concomitant]
     Indication: NASAL CONGESTION
     Dosage: 10 MG, PRN
     Route: 048
     Dates: start: 2000
  3. METHYLSULFONYLMETHANE [Concomitant]
     Indication: ARTHRALGIA
     Dosage: 4500 MG, QD
     Route: 048
     Dates: start: 20071009
  4. DEXTROPROPOXYPHENE NAPSILATE, PARACETAMOL [Concomitant]
     Indication: ARTHRALGIA
     Dosage: 1 OTHER, PRN DOSE:1 OTHER
     Route: 048
     Dates: start: 2005
  5. LEVOTHYROXINE SODIUM [Concomitant]
     Indication: HYPOTHYROIDISM
     Dosage: 25 MCG, QD
     Route: 048
     Dates: start: 2006
  6. PIROXICAM [Concomitant]
     Indication: PSORIATIC ARTHROPATHY
     Dosage: 40 MG, QD
     Route: 048
     Dates: start: 1996
  7. NISOLDIPINE [Concomitant]
     Indication: CORONARY ARTERY DISEASE
     Dosage: 20 MG, QD
     Route: 048
     Dates: start: 2007
  8. CLONIDINE [Concomitant]
     Indication: HYPERTENSION
     Dosage: 0.1 MG, QD
     Route: 048
     Dates: start: 2007
  9. HYDROCHLOROTHIAZIDE [Concomitant]
     Indication: HYPERTENSION
     Dosage: 75 MG, QD
     Route: 048
     Dates: start: 1998
  10. POTASSIUM CHLORIDE [Concomitant]
     Indication: ELECTROLYTE SUBSTITUTION THERAPY
     Dosage: 10 MEQ, QD
     Route: 048
     Dates: start: 1997
  11. OLMESARTAN MEDOXOMIL [Concomitant]
     Indication: HYPERTENSION
     Dosage: 40 MG, QD
     Route: 048
     Dates: start: 2005
  12. LISINOPRIL [Concomitant]
     Indication: HYPERTENSION
     Dosage: 60 MG, QD
     Route: 048
     Dates: start: 1997
  13. CALCIUM CARBONATE [Concomitant]
     Indication: DYSPEPSIA
     Dosage: 3 OTHER, PRN DOSE:3 OTHER
     Route: 048
     Dates: start: 20080901
  14. RANITIDINE [Concomitant]
     Indication: DYSPEPSIA
     Dosage: 75 MG, PRN
     Route: 048
     Dates: start: 20080901
  15. PARACETAMOL [Concomitant]
     Indication: PREMEDICATION
     Dosage: 1 OTHER, ONCE DOSE:1 OTHER
     Route: 067
     Dates: start: 20090115, end: 20090115
  16. METHYLPREDNISOLONE [Concomitant]
     Indication: PREMEDICATION
     Dosage: 125 MG, ONCE
     Route: 042
     Dates: start: 20090115, end: 20090115

REACTIONS (8)
  - Dyspepsia [Recovered/Resolved]
  - Angioedema [Recovered/Resolved]
  - Angioedema [Recovered/Resolved]
  - Pruritus generalised [Recovered/Resolved]
  - Rash [Recovered/Resolved]
  - Tremor [Recovered/Resolved]
  - Pruritus [Recovered/Resolved]
  - Urticaria [Recovered/Resolved]
